FAERS Safety Report 16053952 (Version 1)
Quarter: 2019Q1

REPORT INFORMATION
  Report Type: Spontaneous
  Country: US (occurrence: US)
  Receive Date: 20190308
  Receipt Date: 20190308
  Transmission Date: 20190418
  Serious: No
  Sender: FDA-Public Use
  Company Number: US-TEVA-2019-US-1012106

PATIENT
  Age: 60 Year
  Sex: Male

DRUGS (1)
  1. TADALAFIL TABLET [Suspect]
     Active Substance: TADALAFIL
     Indication: ERECTILE DYSFUNCTION
     Dosage: FORM STRENGTH: 10 UNIT NOT PROVIDED
     Route: 065
     Dates: start: 20190207

REACTIONS (1)
  - Abdominal pain upper [Not Recovered/Not Resolved]

NARRATIVE: CASE EVENT DATE: 20190207
